FAERS Safety Report 4303558-6 (Version None)
Quarter: 2004Q1

REPORT INFORMATION
  Report Type: 
  Country: None (occurrence: None)
  Receive Date: 20040223
  Receipt Date: 20040209
  Transmission Date: 20041129
  Serious: Yes (Hospitalization, Disabling)
  Sender: FDA-Public Use
  Company Number: 2003IC000620

PATIENT
  Age: 75 Year
  Sex: Male
  Weight: 84 kg

DRUGS (2)
  1. DALMADORM ^ICN^ (FLURAZEPAM HYDROCHLORIDE) [Suspect]
     Indication: MEDICATION ERROR
  2. COX189A VS NAPROXEN + IBUPROFEN (CODE NOT BROKEN) (GENERIC UNKNOWN) [Suspect]
     Indication: OSTEOARTHRITIS
     Dates: start: 20020618, end: 20030617

REACTIONS (5)
  - CONCOMITANT DISEASE PROGRESSION [None]
  - CONDITION AGGRAVATED [None]
  - DEPRESSION [None]
  - FAMILY STRESS [None]
  - SUICIDE ATTEMPT [None]
